FAERS Safety Report 4321852-X (Version None)
Quarter: 2004Q1

REPORT INFORMATION
  Report Type: 
  Country: None (occurrence: None)
  Receive Date: 20040322
  Receipt Date: 20040322
  Transmission Date: 20041129
  Serious: No
  Sender: FDA-Public Use
  Company Number: None

PATIENT
  Age: 65 Year
  Sex: Male

DRUGS (1)
  1. FORMOTEROL 12 MCG [Suspect]
     Indication: CHRONIC OBSTRUCTIVE AIRWAYS DISEASE
     Dosage: 12 MCG PO BID
     Route: 048

REACTIONS (3)
  - HEART RATE INCREASED [None]
  - INSOMNIA [None]
  - NERVOUSNESS [None]
